FAERS Safety Report 11059588 (Version 8)
Quarter: 2019Q1

REPORT INFORMATION
  Report Type: Spontaneous
  Country: FR (occurrence: FR)
  Receive Date: 20150423
  Receipt Date: 20190328
  Transmission Date: 20190417
  Serious: Yes (Life-Threatening, Hospitalization, Other)
  Sender: FDA-Public Use
  Company Number: PHHY2015FR047216

PATIENT
  Age: 52 Year
  Sex: Male
  Weight: 105 kg

DRUGS (7)
  1. MYCOPHENOLATE MOFETIL. [Suspect]
     Active Substance: MYCOPHENOLATE MOFETIL
     Dosage: 1500 MG, QD
     Route: 065
  2. PREDNISOLONE. [Suspect]
     Active Substance: PREDNISOLONE
     Indication: PEMPHIGOID
     Dosage: 100 MG, QD
     Route: 065
  3. PREDNISOLONE. [Suspect]
     Active Substance: PREDNISOLONE
     Dosage: 60 MG, QD
     Route: 065
  4. MYCOPHENOLATE MOFETIL. [Suspect]
     Active Substance: MYCOPHENOLATE MOFETIL
     Indication: PEMPHIGOID
     Dosage: 1 G, BID
     Route: 065
  5. MYCOPHENOLATE MOFETIL. [Suspect]
     Active Substance: MYCOPHENOLATE MOFETIL
     Dosage: 4 G, QD
     Route: 065
  6. CLOBETASOL PROPIONATE. [Suspect]
     Active Substance: CLOBETASOL PROPIONATE
     Indication: PEMPHIGOID
     Dosage: 30 G, QD
     Route: 061
  7. MYCOPHENOLATE MOFETIL. [Suspect]
     Active Substance: MYCOPHENOLATE MOFETIL
     Dosage: 2 G, QD
     Route: 065

REACTIONS (10)
  - White blood cell count increased [Recovered/Resolved with Sequelae]
  - Skin erosion [Unknown]
  - C-reactive protein increased [Recovered/Resolved with Sequelae]
  - Drug ineffective [Unknown]
  - Streptococcal infection [Unknown]
  - Beta haemolytic streptococcal infection [Recovered/Resolved with Sequelae]
  - Neutrophil count increased [Recovered/Resolved with Sequelae]
  - Staphylococcal infection [Recovered/Resolved with Sequelae]
  - Necrotising fasciitis [Recovered/Resolved with Sequelae]
  - Off label use [Unknown]
